FAERS Safety Report 7473889-X (Version None)
Quarter: 2011Q2

REPORT INFORMATION
  Report Type: 
  Country: None (occurrence: None)
  Receive Date: 20110511
  Receipt Date: 20110506
  Transmission Date: 20111010
  Serious: Yes (Life-Threatening, Hospitalization, Disabling)
  Sender: FDA-Public Use
  Company Number: BR-ASTRAZENECA-2011SE26835

PATIENT
  Age: 63 Year
  Sex: Male
  Weight: 108 kg

DRUGS (12)
  1. LASIX [Concomitant]
     Indication: HYPERTENSION
     Route: 048
     Dates: start: 20010101
  2. INSULIN [Concomitant]
     Indication: DIABETES MELLITUS
     Route: 058
     Dates: start: 20010101
  3. METOPROLOL SUCCINATE [Suspect]
     Indication: HYPERTENSION
     Route: 048
     Dates: start: 20070101
  4. LABIRIN [Concomitant]
     Route: 048
     Dates: start: 20010101
  5. ATACAND HCT [Suspect]
     Indication: HYPERTENSION
     Dosage: 16/12.5MG TWO TIMES A DAY
     Route: 048
     Dates: start: 20010101
  6. ATORVASTATIN [Concomitant]
     Route: 048
     Dates: start: 20010101
  7. ADALAT [Concomitant]
     Indication: HYPERTENSION
     Route: 048
     Dates: end: 20010101
  8. SERTALINE [Concomitant]
     Route: 048
     Dates: start: 20010101
  9. PLAVIX [Concomitant]
     Route: 048
     Dates: start: 20010101
  10. FRONTAL [Concomitant]
     Indication: INSOMNIA
     Route: 048
     Dates: start: 20010101
  11. ADALAT [Concomitant]
     Indication: HYPERTENSION
     Route: 048
     Dates: start: 20010101
  12. SOMALGIN CARDIO [Concomitant]
     Indication: HYPERTENSION
     Route: 048
     Dates: start: 20010101

REACTIONS (13)
  - EYE LASER SURGERY [None]
  - RIB FRACTURE [None]
  - ANGIOPLASTY [None]
  - RETINAL DISORDER [None]
  - STENT PLACEMENT [None]
  - WEIGHT DECREASED [None]
  - BLOOD PRESSURE INADEQUATELY CONTROLLED [None]
  - VENOUS OCCLUSION [None]
  - OFF LABEL USE [None]
  - FALL [None]
  - RESPIRATORY TRACT INFECTION [None]
  - NERVE INJURY [None]
  - PLEURAL EFFUSION [None]
